FAERS Safety Report 21525789 (Version 6)
Quarter: 2022Q4

REPORT INFORMATION
  Report Type: Spontaneous
  Country: US (occurrence: US)
  Receive Date: 20221031
  Receipt Date: 20221213
  Transmission Date: 20230113
  Serious: Yes (Other)
  Sender: FDA-Public Use
  Company Number: US-BIOVITRUM-2022US12305

PATIENT
  Age: 1 Year
  Sex: Male
  Weight: 9 kg

DRUGS (9)
  1. SYNAGIS [Suspect]
     Active Substance: PALIVIZUMAB
     Indication: Premature baby
     Dosage: INTO THE MUSCLE
     Dates: start: 20211116
  2. SYNAGIS [Suspect]
     Active Substance: PALIVIZUMAB
     Indication: Cerebral disorder
     Dosage: INTO THE MUSCLE
     Dates: start: 20220916
  3. SYNAGIS [Suspect]
     Active Substance: PALIVIZUMAB
     Indication: Intraventricular haemorrhage neonatal
  4. SYNAGIS [Suspect]
     Active Substance: PALIVIZUMAB
     Indication: Low birth weight baby
  5. SYNAGIS [Suspect]
     Active Substance: PALIVIZUMAB
     Indication: Intraventricular haemorrhage neonatal
  6. SYNAGIS [Suspect]
     Active Substance: PALIVIZUMAB
     Indication: Congenital cerebral cyst
  7. SYNAGIS [Suspect]
     Active Substance: PALIVIZUMAB
     Indication: Antiviral prophylaxis
  8. ALBUTEROL [Concomitant]
     Active Substance: ALBUTEROL
     Indication: Product used for unknown indication
     Dosage: AS NEEDED
  9. IRON\VITAMINS [Concomitant]
     Active Substance: IRON\VITAMINS
     Indication: Product used for unknown indication

REACTIONS (9)
  - Acquired diaphragmatic eventration [Recovered/Resolved]
  - Nasal congestion [Recovered/Resolved]
  - Sneezing [Recovered/Resolved]
  - Dyspnoea [Recovered/Resolved]
  - Respiratory syncytial virus infection [Recovered/Resolved]
  - Cough [Recovering/Resolving]
  - Rhinorrhoea [Recovering/Resolving]
  - Oxygen saturation decreased [Recovered/Resolved]
  - Product dose omission issue [Unknown]

NARRATIVE: CASE EVENT DATE: 20221001
